FAERS Safety Report 8526030-6 (Version None)
Quarter: 2012Q3

REPORT INFORMATION
  Report Type: 
  Country: None (occurrence: None)
  Receive Date: 20120720
  Receipt Date: 20120718
  Transmission Date: 20120928
  Serious: Yes (Other)
  Sender: FDA-Public Use
  Company Number: AU-AMGEN-AUSSP2012038259

PATIENT
  Age: 64 Year
  Sex: Male

DRUGS (4)
  1. XGEVA [Suspect]
     Indication: METASTASES TO BONE
     Dosage: UNK UNK, ONE TIME DOSE
     Dates: start: 20120328, end: 20120328
  2. ZOLEDRONIC ACID [Concomitant]
     Indication: METASTASES TO BONE
     Dosage: UNK
     Dates: start: 20120101
  3. XGEVA [Suspect]
     Indication: PROSTATE CANCER
  4. ZOLEDRONIC ACID [Concomitant]
     Dosage: UNK
     Dates: start: 20120401

REACTIONS (8)
  - DISEASE PROGRESSION [None]
  - BACK PAIN [None]
  - METASTASES TO MENINGES [None]
  - BONE PAIN [None]
  - PELVIC PAIN [None]
  - DECREASED APPETITE [None]
  - WEIGHT DECREASED [None]
  - ARTHRALGIA [None]
